FAERS Safety Report 26173038 (Version 1)
Quarter: 2025Q4

REPORT INFORMATION
  Report Type: Other
  Country: CN (occurrence: CN)
  Receive Date: 20251218
  Receipt Date: 20251218
  Transmission Date: 20260118
  Serious: Yes (Hospitalization)
  Sender: TETRAPHASE PHARMACEUTICALS, INC.
  Company Number: None

PATIENT

DRUGS (4)
  1. XERAVA [Suspect]
     Active Substance: ERAVACYCLINE DIHYDROCHLORIDE
     Indication: Plasmacytosis
     Dosage: 50 MG, BID
     Route: 041
     Dates: start: 20251129, end: 20251129
  2. TIGECYCLINE [Suspect]
     Active Substance: TIGECYCLINE
     Indication: Plasmacytosis
     Dosage: 50 MG, BID
     Route: 041
     Dates: start: 20251128, end: 20251201
  3. CASPOFUNGIN ACETATE [Concomitant]
     Active Substance: CASPOFUNGIN ACETATE
     Indication: Anti-infective therapy
     Dosage: 50 MG, QD
     Route: 041
     Dates: start: 20251128
  4. LINEZOLID [Concomitant]
     Active Substance: LINEZOLID
     Indication: Product used for unknown indication
     Dosage: 0.6 G, BID
     Route: 042
     Dates: start: 20251129

REACTIONS (2)
  - Blood fibrinogen decreased [Recovering/Resolving]
  - Off label use [Unknown]

NARRATIVE: CASE EVENT DATE: 20251129
